FAERS Safety Report 4956750-1 (Version None)
Quarter: 2006Q1

REPORT INFORMATION
  Report Type: 
  Country: None (occurrence: None)
  Receive Date: 20060329
  Receipt Date: 20060317
  Transmission Date: 20060701
  Serious: Yes (Hospitalization)
  Sender: FDA-Public Use
  Company Number: DE-ROCHE-440504

PATIENT
  Age: 68 Year
  Sex: Male
  Weight: 89 kg

DRUGS (3)
  1. CAPECITABINE [Suspect]
     Dosage: UNITS REPORTED AS '8', AND FREQUENCY REPORTED AS '4-0-4'.
     Route: 048
     Dates: start: 20060223, end: 20060304
  2. CISPLATIN [Suspect]
     Route: 042
     Dates: start: 20060324
  3. CISPLATIN [Suspect]
     Dosage: FREQUENCY REPORTED AS '1 X'.
     Route: 042
     Dates: start: 20060223

REACTIONS (2)
  - CHOLANGITIS [None]
  - MUCOSAL INFLAMMATION [None]
